FAERS Safety Report 7054220-0 (Version None)
Quarter: 2010Q4

REPORT INFORMATION
  Report Type: 
  Country: None (occurrence: None)
  Receive Date: 20101020
  Receipt Date: 20101007
  Transmission Date: 20110411
  Serious: Yes (Other)
  Sender: FDA-Public Use
  Company Number: PHHY2010CH66725

PATIENT
  Age: 59 Year
  Sex: Female

DRUGS (4)
  1. RASILEZ [Suspect]
     Indication: HYPERTENSION
     Dosage: 150 MG/D
     Dates: start: 20100415, end: 20100615
  2. TENORMIN [Suspect]
     Indication: HYPERTENSION
     Dosage: 25 MG/D
     Dates: start: 19980101
  3. SORTIS [Suspect]
     Indication: HYPERCHOLESTEROLAEMIA
     Dosage: 10 MG/D
     Dates: start: 20050101, end: 20100615
  4. DUOFER [Concomitant]
     Indication: IRON DEFICIENCY ANAEMIA
     Dosage: 1 DOSAGE FORM/DAY
     Dates: start: 20100301, end: 20100615

REACTIONS (3)
  - PRURITUS [None]
  - RASH VESICULAR [None]
  - TOXIC SKIN ERUPTION [None]
